FAERS Safety Report 14344063 (Version 1)
Quarter: 2018Q1

REPORT INFORMATION
  Report Type: Spontaneous
  Country: US (occurrence: US)
  Receive Date: 20180102
  Receipt Date: 20180102
  Transmission Date: 20180509
  Serious: Yes (Death)
  Sender: FDA-Public Use
  Company Number: US-BAYER-2017-249124

PATIENT
  Age: 84 Year
  Sex: Male
  Weight: 113.3 kg

DRUGS (2)
  1. ALKA-SELTZER PLUS COLD FORMULA DAY/NIGHT EFFERVESCENT COMBI NIGHT (ASPIRIN\DEXTROMETHORPHAN\DOXYLAMINE\PHENYLEPHRINE) [Suspect]
     Active Substance: ASPIRIN\DEXTROMETHORPHAN\DOXYLAMINE\PHENYLEPHRINE
     Indication: HYPERSENSITIVITY
     Dosage: 2 DF, WITH WATER
     Route: 048
  2. ALKA-SELTZER PLUS COLD FORMULA DAY/NIGHT EFFERVESCENT COMBI NIGHT (ASPIRIN\DEXTROMETHORPHAN\DOXYLAMINE\PHENYLEPHRINE) [Suspect]
     Active Substance: ASPIRIN\DEXTROMETHORPHAN\DOXYLAMINE\PHENYLEPHRINE
     Indication: NASOPHARYNGITIS

REACTIONS (2)
  - Death [Fatal]
  - Blood glucose decreased [Unknown]

NARRATIVE: CASE EVENT DATE: 201706
